FAERS Safety Report 8406094-0 (Version None)
Quarter: 2012Q2

REPORT INFORMATION
  Report Type: 
  Country: None (occurrence: None)
  Receive Date: 20120323
  Receipt Date: 20110217
  Transmission Date: 20120825
  Serious: Yes (Hospitalization)
  Sender: FDA-Public Use
  Company Number: 163-21880-11011925

PATIENT
  Age: 77 Year
  Sex: Female

DRUGS (8)
  1. NEXIUM [Concomitant]
  2. FENTANYL [Concomitant]
  3. REVLIMID [Suspect]
     Indication: MULTIPLE MYELOMA
     Dosage: 15 MG, DAYS 1-21, PO,  10 MG, DAYS 1-21, PO
     Route: 048
     Dates: start: 20090901
  4. REVLIMID [Suspect]
     Indication: MULTIPLE MYELOMA
     Dosage: 15 MG, DAYS 1-21, PO,  10 MG, DAYS 1-21, PO
     Route: 048
     Dates: start: 20110101
  5. REVLIMID [Suspect]
     Indication: MULTIPLE MYELOMA
     Dosage: 15 MG, DAYS 1-21, PO,  10 MG, DAYS 1-21, PO
     Route: 048
     Dates: start: 20101201
  6. REVLIMID [Suspect]
     Indication: MULTIPLE MYELOMA
     Dosage: 15 MG, DAYS 1-21, PO,  10 MG, DAYS 1-21, PO
     Route: 048
     Dates: start: 20090601
  7. DEXAMETHASONE [Concomitant]
  8. PLAVIX [Concomitant]

REACTIONS (1)
  - WHITE BLOOD CELL COUNT DECREASED [None]
